FAERS Safety Report 25263592 (Version 1)
Quarter: 2025Q2

REPORT INFORMATION
  Report Type: Spontaneous
  Country: GB (occurrence: GB)
  Receive Date: 20250502
  Receipt Date: 20250502
  Transmission Date: 20250716
  Serious: Yes (Other)
  Sender: PFIZER
  Company Number: None

PATIENT
  Sex: Female

DRUGS (2)
  1. VARENICLINE TARTRATE [Suspect]
     Active Substance: VARENICLINE TARTRATE
     Dosage: 1 MG, 2X/DAY (BD)
     Route: 048
     Dates: start: 202502
  2. MOUNJARO [Concomitant]
     Active Substance: TIRZEPATIDE
     Indication: Obesity

REACTIONS (4)
  - Anxiety [Not Recovered/Not Resolved]
  - Mood altered [Not Recovered/Not Resolved]
  - Tearfulness [Unknown]
  - Nightmare [Unknown]

NARRATIVE: CASE EVENT DATE: 20250101
